FAERS Safety Report 5300281-6 (Version None)
Quarter: 2007Q2

REPORT INFORMATION
  Report Type: 
  Country: None (occurrence: None)
  Receive Date: 20070418
  Receipt Date: 20070418
  Transmission Date: 20071010
  Serious: Yes (Life-Threatening, Disabling, Other)
  Sender: FDA-Public Use
  Company Number: None

PATIENT
  Age: 27 Year
  Sex: Female
  Weight: 60 kg

DRUGS (2)
  1. RU486 DANCO DANCO [Suspect]
     Indication: ABORTION
     Dosage: 1 TABLET ONCE PO
     Route: 048
     Dates: start: 20070313, end: 20070313
  2. CYTOTEC [Suspect]
     Indication: ABORTION
     Dosage: 4 TABLET ONCE PO
     Route: 048
     Dates: start: 20070314, end: 20070314

REACTIONS (10)
  - ALOPECIA [None]
  - ASTHENIA [None]
  - BODY TEMPERATURE INCREASED [None]
  - CHILLS [None]
  - CRYING [None]
  - HAEMORRHAGE [None]
  - HYPOTRICHOSIS [None]
  - IMMUNE SYSTEM DISORDER [None]
  - ORAL PAIN [None]
  - PHARYNGOLARYNGEAL PAIN [None]
